FAERS Safety Report 15495704 (Version 1)
Quarter: 2018Q4

REPORT INFORMATION
  Report Type: Spontaneous
  Country: FR (occurrence: FR)
  Receive Date: 20181013
  Receipt Date: 20181013
  Transmission Date: 20190205
  Serious: Yes (Other)
  Sender: FDA-Public Use
  Company Number: PHHY2018FR114710

PATIENT
  Age: 29 Year
  Sex: Female

DRUGS (3)
  1. ACETYLSALICYLIC ACID [Suspect]
     Active Substance: ASPIRIN
     Indication: INFERTILITY FEMALE
     Dosage: 100 MG, UNK
     Route: 065
  2. HYDROXYCHLOROQUINE [Suspect]
     Active Substance: HYDROXYCHLOROQUINE
     Indication: INFERTILITY FEMALE
     Dosage: 400 MG, UNK
     Route: 065
  3. PREDNISONE. [Suspect]
     Active Substance: PREDNISONE
     Indication: INFERTILITY FEMALE
     Dosage: UNK
     Route: 065

REACTIONS (3)
  - Term baby [Unknown]
  - Maternal exposure during pregnancy [Unknown]
  - Low birth weight baby [Unknown]
